FAERS Safety Report 16999863 (Version 1)
Quarter: 2019Q4

REPORT INFORMATION
  Report Type: Spontaneous
  Country: US (occurrence: US)
  Receive Date: 20191106
  Receipt Date: 20191106
  Transmission Date: 20200122
  Serious: No
  Sender: FDA-Public Use
  Company Number: US-PFIZER INC-2019480136

PATIENT
  Age: 56 Year
  Sex: Female
  Weight: 53.52 kg

DRUGS (2)
  1. GABAPENTIN. [Suspect]
     Active Substance: GABAPENTIN
     Dosage: 100 MG, 1X/DAY (100MG AT BEDTIME FOR 3 DAYS)
  2. GABAPENTIN. [Suspect]
     Active Substance: GABAPENTIN
     Dosage: 100 MG, 2X/DAY
     Route: 048

REACTIONS (3)
  - Anxiety [Unknown]
  - Paranoia [Unknown]
  - Insomnia [Unknown]
